FAERS Safety Report 24270028 (Version 2)
Quarter: 2024Q3

REPORT INFORMATION
  Report Type: Spontaneous
  Country: BR (occurrence: BR)
  Receive Date: 20240830
  Receipt Date: 20240913
  Transmission Date: 20241017
  Serious: Yes (Hospitalization, Other)
  Sender: MERCK
  Company Number: BR-009507513-2408BRA010081

PATIENT
  Age: 30 Year
  Sex: Male
  Weight: 75.6 kg

DRUGS (5)
  1. BELZUTIFAN [Suspect]
     Active Substance: BELZUTIFAN
     Dosage: UNK
     Route: 048
     Dates: start: 20240708, end: 2024
  2. MORPHINE [Concomitant]
     Active Substance: MORPHINE
     Indication: Pain
     Dosage: 30 MILLIGRAM, Q8H
  3. AMITRIPTYLINE [Concomitant]
     Active Substance: AMITRIPTYLINE
     Indication: Depression
  4. SERTRALINE [Concomitant]
     Active Substance: SERTRALINE HYDROCHLORIDE
     Indication: Depression
     Dosage: 50 MILLIGRAM, QD
  5. OMEPRAZOLE [Concomitant]
     Active Substance: OMEPRAZOLE
     Indication: Prophylaxis against gastrointestinal ulcer
     Dosage: 20 MG/DAY (ALSO REPORTED AS 2 TABLETS/CAPSULES PER DAY)

REACTIONS (3)
  - Cholecystitis acute [Recovering/Resolving]
  - Hiccups [Recovering/Resolving]
  - Tremor [Recovered/Resolved with Sequelae]

NARRATIVE: CASE EVENT DATE: 20240716
